FAERS Safety Report 7661456-4 (Version None)
Quarter: 2011Q3

REPORT INFORMATION
  Report Type: 
  Country: None (occurrence: None)
  Receive Date: 20110805
  Receipt Date: 20101019
  Transmission Date: 20111222
  Serious: No
  Sender: FDA-Public Use
  Company Number: US-ABBOTT-10P-163-0679270-00

PATIENT
  Sex: Female
  Weight: 87.622 kg

DRUGS (10)
  1. ASPIRIN [Concomitant]
     Indication: PRODUCT USED FOR UNKNOWN INDICATION
  2. FISH OIL [Concomitant]
     Indication: PRODUCT USED FOR UNKNOWN INDICATION
  3. M.V.I. [Concomitant]
     Indication: PRODUCT USED FOR UNKNOWN INDICATION
  4. ZYRTEC [Concomitant]
     Indication: SEASONAL ALLERGY
  5. FLAXSEED OIL [Concomitant]
     Indication: PRODUCT USED FOR UNKNOWN INDICATION
  6. AVAPRO [Concomitant]
     Indication: BLOOD PRESSURE
  7. GLUCOTROL XL [Concomitant]
     Indication: DIABETES MELLITUS
  8. KLONOPIN [Concomitant]
     Indication: INSOMNIA
  9. NIASPAN [Suspect]
     Indication: HIGH DENSITY LIPOPROTEIN
  10. SLIDING SCALE INSULIN [Concomitant]
     Indication: PRODUCT USED FOR UNKNOWN INDICATION

REACTIONS (2)
  - SYNCOPE [None]
  - BLOOD GLUCOSE INCREASED [None]
